FAERS Safety Report 10396873 (Version 1)
Quarter: 2014Q3

REPORT INFORMATION
  Report Type: Spontaneous
  Country: US (occurrence: US)
  Receive Date: 20140820
  Receipt Date: 20140820
  Transmission Date: 20150326
  Serious: Yes (Other)
  Sender: FDA-Public Use
  Company Number: US-BAYER-2014-121580

PATIENT
  Age: 33 Year
  Sex: Female

DRUGS (2)
  1. GADAVIST [Suspect]
     Active Substance: GADOBUTROL
     Indication: NUCLEAR MAGNETIC RESONANCE IMAGING BRAIN
     Dosage: 7.5 ML, ONCE
     Route: 042
     Dates: start: 20140812, end: 20140812
  2. GADAVIST [Suspect]
     Active Substance: GADOBUTROL
     Indication: MULTIPLE SCLEROSIS

REACTIONS (3)
  - Choking sensation [None]
  - Convulsion [None]
  - Urticaria [None]

NARRATIVE: CASE EVENT DATE: 20140812
